FAERS Safety Report 20575542 (Version 1)
Quarter: 2022Q1

REPORT INFORMATION
  Report Type: Spontaneous
  Country: AU (occurrence: AU)
  Receive Date: 20220310
  Receipt Date: 20220310
  Transmission Date: 20220424
  Serious: Yes (Other)
  Sender: FDA-Public Use
  Company Number: AU-BEH-2022142909

PATIENT
  Age: 79 Year
  Sex: Male

DRUGS (2)
  1. PRIVIGEN [Suspect]
     Active Substance: HUMAN IMMUNOGLOBULIN G
     Indication: Immunodeficiency common variable
     Dosage: 35 GRAM
     Route: 065
     Dates: start: 20220203
  2. PRIVIGEN [Suspect]
     Active Substance: HUMAN IMMUNOGLOBULIN G
     Indication: Non-Hodgkin^s lymphoma

REACTIONS (4)
  - Unresponsive to stimuli [Unknown]
  - Hypotension [Unknown]
  - Pallor [Unknown]
  - Cold sweat [Unknown]

NARRATIVE: CASE EVENT DATE: 20220303
